FAERS Safety Report 10177871 (Version 1)
Quarter: 2014Q2

REPORT INFORMATION
  Report Type: Spontaneous
  Country: BE (occurrence: BE)
  Receive Date: 20140516
  Receipt Date: 20140516
  Transmission Date: 20141212
  Serious: Yes (Life-Threatening, Hospitalization, Other)
  Sender: FDA-Public Use
  Company Number: BE-ASTRAZENECA-2014SE33157

PATIENT
  Age: 71 Year
  Sex: Male

DRUGS (7)
  1. LISINOPRIL [Suspect]
     Route: 048
  2. ASPIRINE [Concomitant]
  3. CELLCEPT [Concomitant]
     Indication: IMMUNOSUPPRESSION
  4. PROGRAFT [Concomitant]
     Indication: IMMUNOSUPPRESSION
  5. BISOPROLOL [Concomitant]
  6. FUROSEMIDE [Concomitant]
  7. SIMVASTATINE [Concomitant]

REACTIONS (2)
  - Respiratory arrest [Recovered/Resolved]
  - Angioedema [Recovered/Resolved]
